FAERS Safety Report 21945236 (Version 1)
Quarter: 2023Q1

REPORT INFORMATION
  Report Type: Spontaneous
  Country: US (occurrence: None)
  Receive Date: 20230201
  Receipt Date: 20230201
  Transmission Date: 20230418
  Serious: No
  Sender: FDA-Public Use
  Company Number: None

PATIENT
  Age: 54 Year
  Sex: Male

DRUGS (1)
  1. PROMACTA [Suspect]
     Active Substance: ELTROMBOPAG OLAMINE
     Dosage: 100MG DAILY ORAL
     Route: 048
     Dates: start: 202210

REACTIONS (2)
  - Cellulitis [None]
  - Klebsiella infection [None]

NARRATIVE: CASE EVENT DATE: 20230201
